FAERS Safety Report 8387693-1 (Version None)
Quarter: 2012Q2

REPORT INFORMATION
  Report Type: 
  Country: None (occurrence: None)
  Receive Date: 20120525
  Receipt Date: 20120516
  Transmission Date: 20120825
  Serious: Yes (Hospitalization, Other)
  Sender: FDA-Public Use
  Company Number: US-ABBOTT-12P-163-0936136-00

PATIENT
  Age: 63 Year
  Sex: Female

DRUGS (8)
  1. HUMIRA [Suspect]
     Dates: start: 20110901, end: 20120501
  2. METHOTREXATE [Concomitant]
     Indication: PRODUCT USED FOR UNKNOWN INDICATION
  3. LOVASTATIN [Concomitant]
     Indication: PRODUCT USED FOR UNKNOWN INDICATION
  4. CYMBALTA [Concomitant]
     Indication: PRODUCT USED FOR UNKNOWN INDICATION
  5. ESTRADIOL [Concomitant]
     Indication: PRODUCT USED FOR UNKNOWN INDICATION
     Dosage: AT BEDTIME
  6. TYLENOL [Concomitant]
     Indication: PRODUCT USED FOR UNKNOWN INDICATION
  7. HUMIRA [Suspect]
     Indication: PSORIATIC ARTHROPATHY
     Dates: start: 20070201, end: 20100120
  8. CELEBREX [Concomitant]
     Indication: PRODUCT USED FOR UNKNOWN INDICATION

REACTIONS (17)
  - EXOSTOSIS [None]
  - ARTHRITIS [None]
  - NORMOCHROMIC NORMOCYTIC ANAEMIA [None]
  - FIBROMYALGIA [None]
  - NUCLEAR MAGNETIC RESONANCE IMAGING ABNORMAL [None]
  - FULL BLOOD COUNT DECREASED [None]
  - ARTHROPATHY [None]
  - INSOMNIA [None]
  - PARAESTHESIA [None]
  - INTERVERTEBRAL DISC DEGENERATION [None]
  - SPINAL COLUMN STENOSIS [None]
  - IRON DEFICIENCY ANAEMIA [None]
  - FATIGUE [None]
  - RESTLESS LEGS SYNDROME [None]
  - CHRONIC FATIGUE SYNDROME [None]
  - NERVE ROOT COMPRESSION [None]
  - MUSCLE SPASMS [None]
